FAERS Safety Report 13585289 (Version 1)
Quarter: 2017Q2

REPORT INFORMATION
  Report Type: Spontaneous
  Country: US (occurrence: US)
  Receive Date: 20170526
  Receipt Date: 20170526
  Transmission Date: 20170830
  Serious: No
  Sender: FDA-Public Use
  Company Number: US-009507513-1705USA005153

PATIENT
  Sex: Female
  Weight: 68.93 kg

DRUGS (1)
  1. NEXPLANON [Suspect]
     Active Substance: ETONOGESTREL
     Indication: CONTRACEPTION
     Dosage: 1 DF, UNK
     Route: 059
     Dates: start: 20151229

REACTIONS (6)
  - Muscular weakness [Unknown]
  - Joint lock [Unknown]
  - Musculoskeletal stiffness [Unknown]
  - Implant site pain [Unknown]
  - Contusion [Unknown]
  - Implant site bruising [Unknown]

NARRATIVE: CASE EVENT DATE: 2016
